FAERS Safety Report 4640409-4 (Version None)
Quarter: 2005Q2

REPORT INFORMATION
  Report Type: 
  Country: None (occurrence: None)
  Receive Date: 20050419
  Receipt Date: 20050412
  Transmission Date: 20051028
  Serious: Yes (Hospitalization, Disabling, Other)
  Sender: FDA-Public Use
  Company Number: 2005022076

PATIENT
  Age: 84 Year
  Sex: Female
  Weight: 68.0396 kg

DRUGS (4)
  1. LIPITOR [Suspect]
     Indication: LIPIDS INCREASED
     Dosage: 20 MG (20 MG), ORAL
     Route: 048
     Dates: start: 20030801, end: 20050126
  2. NEURONTIN [Suspect]
     Indication: NEUROPATHY
     Dosage: 300 MG, ORAL
     Route: 048
     Dates: start: 20041201
  3. ASPIRIN [Concomitant]
  4. ALENDRONATE SODIUM [Concomitant]

REACTIONS (12)
  - BACK PAIN [None]
  - CELLULITIS [None]
  - FALL [None]
  - FEELING ABNORMAL [None]
  - FOOT FRACTURE [None]
  - INFARCTION [None]
  - INTERVERTEBRAL DISC PROTRUSION [None]
  - ISCHAEMIA [None]
  - MUSCULOSKELETAL DISORDER [None]
  - NEUROPATHY PERIPHERAL [None]
  - PAIN IN EXTREMITY [None]
  - SPINAL COLUMN STENOSIS [None]
